FAERS Safety Report 24344700 (Version 1)
Quarter: 2024Q3

REPORT INFORMATION
  Report Type: Other
  Country: US (occurrence: US)
  Receive Date: 20240920
  Receipt Date: 20240920
  Transmission Date: 20241017
  Serious: No
  Sender: Alora Pharma
  Company Number: US-ACELLA PHARMACEUTICALS, LLC-2024ALO00128

PATIENT
  Age: 10 Year
  Sex: Female
  Weight: 28.118 kg

DRUGS (2)
  1. METHYLPHENIDATE HYDROCHLORIDE [Suspect]
     Active Substance: METHYLPHENIDATE HYDROCHLORIDE
     Indication: Attention deficit hyperactivity disorder
     Dosage: 27 MG, 1X/DAY
     Route: 048
     Dates: start: 202310, end: 202310
  2. CLONIDINE [Concomitant]
     Active Substance: CLONIDINE

REACTIONS (10)
  - Weight decreased [Recovering/Resolving]
  - Initial insomnia [Recovered/Resolved]
  - Irritability [Recovering/Resolving]
  - Emotional disorder [Recovering/Resolving]
  - Disturbance in social behaviour [Recovering/Resolving]
  - Therapeutic response shortened [Recovering/Resolving]
  - Therapeutic response changed [Recovering/Resolving]
  - Product substitution issue [Recovered/Resolved]
  - Product substitution issue [Recovered/Resolved]
  - Product formulation issue [Recovered/Resolved]

NARRATIVE: CASE EVENT DATE: 20231001
